FAERS Safety Report 8789808 (Version 10)
Quarter: 2014Q3

REPORT INFORMATION
  Report Type: Report from Study
  Country: DE (occurrence: DE)
  Receive Date: 20120917
  Receipt Date: 20140919
  Transmission Date: 20150326
  Serious: Yes (Hospitalization)
  Sender: FDA-Public Use
  Company Number: DE-UCBSA-065686

PATIENT
  Age: 42 Year
  Sex: Male

DRUGS (15)
  1. METEX [Concomitant]
     Active Substance: METFORMIN HYDROCHLORIDE
     Indication: RHEUMATOID ARTHRITIS
     Dosage: 7.5 MG, WEEKLY (QW)
     Route: 048
     Dates: start: 20111115, end: 20131219
  2. MTXP [Concomitant]
     Dates: start: 200911, end: 201010
  3. MTXO [Concomitant]
     Dates: start: 201203
  4. CERTOLIZUMAB PEGOL RA [Suspect]
     Active Substance: CERTOLIZUMAB PEGOL
     Indication: RHEUMATOID ARTHRITIS
     Dosage: 200 MG, EV 2 WEEKS(QOW)
     Route: 058
     Dates: start: 20110520, end: 20120802
  5. VAGIMID [Concomitant]
     Active Substance: ALLANTOIN\AMINACRINE HYDROCHLORIDE\SULFANILAMIDE
  6. ARAVA [Concomitant]
     Active Substance: LEFLUNOMIDE
     Dates: end: 20131219
  7. PANTOZOL [Concomitant]
     Active Substance: PANTOPRAZOLE SODIUM
  8. MTX [Concomitant]
     Active Substance: METHOTREXATE SODIUM
     Dosage: 10 MG
  9. METEX [Concomitant]
     Active Substance: METFORMIN HYDROCHLORIDE
     Dosage: 7.5 MG, WEEKLY (QW)
     Route: 058
     Dates: start: 20091126, end: 20120809
  10. CEFUROXIM [Concomitant]
     Active Substance: CEFUROXIME
  11. PREDNISOLONE. [Concomitant]
     Active Substance: PREDNISOLONE
     Indication: RHEUMATOID ARTHRITIS
     Dosage: 5 MG, ONCE DAILY (QD)
     Route: 048
     Dates: start: 20091008, end: 20131219
  12. MTXP [Concomitant]
     Dates: start: 201206, end: 201208
  13. MTX [Concomitant]
     Active Substance: METHOTREXATE SODIUM
     Indication: RHEUMATOID ARTHRITIS
     Dosage: 7.5 MG- AS MUCH AS REQUIRED
     Dates: start: 20120301, end: 20120801
  14. MTXP [Concomitant]
     Dates: start: 201111, end: 201203
  15. IBUHEXAL [Concomitant]
     Active Substance: IBUPROFEN

REACTIONS (1)
  - Diverticulitis [Recovered/Resolved]

NARRATIVE: CASE EVENT DATE: 20120807
